FAERS Safety Report 21747735 (Version 1)
Quarter: 2022Q4

REPORT INFORMATION
  Report Type: Spontaneous
  Country: US (occurrence: US)
  Receive Date: 20221219
  Receipt Date: 20221219
  Transmission Date: 20230112
  Serious: No
  Sender: FDA-Public Use
  Company Number: US-BEH-2022153237

PATIENT
  Sex: Female
  Weight: 57.143 kg

DRUGS (1)
  1. HIZENTRA [Suspect]
     Active Substance: HUMAN IMMUNOGLOBULIN G
     Indication: Selective IgA immunodeficiency
     Dosage: 20 GRAM, QOW
     Route: 058
     Dates: start: 202203

REACTIONS (2)
  - Nasopharyngitis [Recovered/Resolved]
  - Weight increased [Unknown]
